FAERS Safety Report 22146871 (Version 2)
Quarter: 2023Q2

REPORT INFORMATION
  Report Type: Spontaneous
  Country: US (occurrence: US)
  Receive Date: 20230328
  Receipt Date: 20230420
  Transmission Date: 20230721
  Serious: No
  Sender: FDA-Public Use
  Company Number: US-BAYER-2023A035129

PATIENT
  Age: 27 Year
  Sex: Female
  Weight: 127.44 kg

DRUGS (1)
  1. KYLEENA [Suspect]
     Active Substance: LEVONORGESTREL
     Indication: Contraception
     Dosage: 17.5?G/DAY
     Route: 015
     Dates: start: 20190806, end: 20230302

REACTIONS (4)
  - Device dislocation [Recovered/Resolved]
  - Coital bleeding [None]
  - Menometrorrhagia [None]
  - Fibrocystic breast disease [None]

NARRATIVE: CASE EVENT DATE: 20230129
